FAERS Safety Report 23689894 (Version 1)
Quarter: 2024Q2

REPORT INFORMATION
  Report Type: Report from Study
  Country: DE (occurrence: DE)
  Receive Date: 20240401
  Receipt Date: 20240401
  Transmission Date: 20240715
  Serious: Yes (Hospitalization, Other)
  Sender: FDA-Public Use
  Company Number: DE-ABBVIE-5699700

PATIENT
  Age: 76 Year
  Sex: Female

DRUGS (1)
  1. HUMIRA [Suspect]
     Active Substance: ADALIMUMAB
     Indication: Rheumatoid arthritis
     Dosage: FORM STRENGTH: 80 MG
     Route: 058
     Dates: start: 20080801, end: 202401

REACTIONS (1)
  - Gallbladder neoplasm [Not Recovered/Not Resolved]

NARRATIVE: CASE EVENT DATE: 20240101
